FAERS Safety Report 11795311 (Version 2)
Quarter: 2016Q2

REPORT INFORMATION
  Report Type: Spontaneous
  Country: US (occurrence: US)
  Receive Date: 20151202
  Receipt Date: 20160609
  Transmission Date: 20160815
  Serious: Yes (Hospitalization)
  Sender: FDA-Public Use
  Company Number: US-B.I. PHARMACEUTICALS,INC./RIDGEFIELD-2015-BI-66896BI

PATIENT
  Sex: Male

DRUGS (11)
  1. AMYLASE/LIPASE/PROTEASE [Concomitant]
     Indication: DYSPEPSIA
     Dosage: 3 ANZ
     Route: 048
     Dates: start: 20140602, end: 20150603
  2. DULOXETINE HCL [Concomitant]
     Active Substance: DULOXETINE HYDROCHLORIDE
     Indication: PRODUCT USED FOR UNKNOWN INDICATION
     Dosage: 1 ANZ
     Route: 048
     Dates: start: 20140206, end: 20150207
  3. CYANOCOBALAMINE [Concomitant]
     Active Substance: CYANOCOBALAMIN
     Indication: PRODUCT USED FOR UNKNOWN INDICATION
     Dosage: 0.0714 ML
     Route: 030
     Dates: start: 20140429, end: 20150430
  4. DOFETILIDE. [Concomitant]
     Active Substance: DOFETILIDE
     Dosage: 500 MCG
     Route: 048
     Dates: start: 20131220, end: 20141221
  5. AMYLASE/LIPASE/PROTEASE [Concomitant]
     Dosage: 3 ANZ
     Route: 048
     Dates: start: 20131129, end: 20141130
  6. LITHIUM CARBONATE. [Concomitant]
     Active Substance: LITHIUM CARBONATE
     Indication: PRODUCT USED FOR UNKNOWN INDICATION
     Dosage: 2 ANZ
     Route: 048
     Dates: start: 20140206, end: 20150207
  7. HYDROCORTISONE. [Concomitant]
     Active Substance: HYDROCORTISONE
     Dosage: 2.5 % CREAM APPLY ON SKIN TWICE A DAY AS NEEDED
     Route: 061
     Dates: start: 20140103, end: 20150104
  8. PRADAXA [Suspect]
     Active Substance: DABIGATRAN ETEXILATE MESYLATE
     Indication: ATRIAL FIBRILLATION
     Dosage: 300 MG
     Route: 048
     Dates: start: 20131209, end: 20141210
  9. FLUOCINONIDE. [Concomitant]
     Active Substance: FLUOCINONIDE
     Dosage: 0.05% SOLN APPLY TO AFFECTED AREA ON SKIN TO SCALP UNTIL ITCHING IS RESOLVED
     Route: 061
     Dates: start: 20131220, end: 20141221
  10. DOFETILIDE. [Concomitant]
     Active Substance: DOFETILIDE
     Indication: ARRHYTHMIA
     Dosage: 250 MCG
     Route: 048
     Dates: start: 20140512, end: 20150513
  11. OMEPRAZOLE. [Concomitant]
     Active Substance: OMEPRAZOLE
     Indication: PRODUCT USED FOR UNKNOWN INDICATION
     Dosage: 2 ANZ
     Route: 048
     Dates: start: 20140515, end: 20150516

REACTIONS (1)
  - Gastrointestinal haemorrhage [Recovered/Resolved]
